FAERS Safety Report 4526162-3 (Version None)
Quarter: 2004Q4

REPORT INFORMATION
  Report Type: 
  Country: None (occurrence: None)
  Receive Date: 20041210
  Receipt Date: 20041130
  Transmission Date: 20050328
  Serious: Yes (Hospitalization, Other)
  Sender: FDA-Public Use
  Company Number: HQWYE721701DEC04

PATIENT
  Age: 60 Year
  Sex: Male

DRUGS (4)
  1. CORDARONE [Suspect]
     Indication: VENTRICULAR TACHYCARDIA
     Dosage: 100 MG 1X PER 1 DAY
     Route: 048
     Dates: start: 19900101, end: 20040503
  2. DIFLUCAN [Suspect]
     Indication: FUNGAL INFECTION
     Route: 048
     Dates: start: 20040426, end: 20040430
  3. KAVEPENIN (PHENOXYMETHYLPENICILLIN POTASSIUM,  ) [Suspect]
     Indication: NASOPHARYNGITIS
     Route: 048
     Dates: start: 20040416, end: 20040418
  4. METOPROLOL TARTRATE [Suspect]
     Dosage: 100 MG
     Route: 048
     Dates: start: 19900101

REACTIONS (9)
  - ALANINE AMINOTRANSFERASE INCREASED [None]
  - ASPARTATE AMINOTRANSFERASE INCREASED [None]
  - DERMATOMYOSITIS [None]
  - DRUG HYPERSENSITIVITY [None]
  - FUNGAL INFECTION [None]
  - MUSCLE NECROSIS [None]
  - NASOPHARYNGITIS [None]
  - RHABDOMYOLYSIS [None]
  - STOMATITIS [None]
